FAERS Safety Report 10142228 (Version 2)
Quarter: 2014Q2

REPORT INFORMATION
  Report Type: Spontaneous
  Country: US (occurrence: US)
  Receive Date: 20140430
  Receipt Date: 20140506
  Transmission Date: 20141212
  Serious: Yes (Hospitalization, Other)
  Sender: FDA-Public Use
  Company Number: US-AMGEN INC.-USASP2014030373

PATIENT
  Age: 54 Year
  Sex: Male
  Weight: 56.69 kg

DRUGS (4)
  1. ENBREL [Suspect]
     Indication: RHEUMATOID ARTHRITIS
     Dosage: 50 MG, 2 TIMES/WK
     Route: 058
     Dates: start: 20090601
  2. PROZAC [Concomitant]
     Dosage: UNK
     Route: 048
  3. IBUPROFEN [Concomitant]
     Dosage: UNK
     Route: 048
  4. TERAZOSIN [Concomitant]
     Dosage: UNK
     Route: 048

REACTIONS (5)
  - Suicidal ideation [Not Recovered/Not Resolved]
  - Intentional self-injury [Not Recovered/Not Resolved]
  - Self-injurious ideation [Not Recovered/Not Resolved]
  - Suicide attempt [Not Recovered/Not Resolved]
  - Feeling abnormal [Unknown]
